FAERS Safety Report 6034285-5 (Version None)
Quarter: 2009Q1

REPORT INFORMATION
  Report Type: 
  Country: None (occurrence: None)
  Receive Date: 20090108
  Receipt Date: 20081230
  Transmission Date: 20090719
  Serious: Yes (Other)
  Sender: FDA-Public Use
  Company Number: 08-001949

PATIENT
  Age: 33 Year
  Sex: Female
  Weight: 73 kg

DRUGS (3)
  1. LOESTRIN 24 FE [Suspect]
     Indication: CONTRACEPTION
     Dosage: ORAL
     Route: 048
     Dates: start: 20080928
  2. LOESTRIN 24 FE [Suspect]
     Indication: CYST
     Dosage: ORAL
     Route: 048
     Dates: start: 20080928
  3. ADVIL [Concomitant]

REACTIONS (5)
  - AMENORRHOEA [None]
  - BACK PAIN [None]
  - HAEMORRHAGIC CYST [None]
  - METRORRHAGIA [None]
  - PNEUMONIA [None]
